FAERS Safety Report 6434715-0 (Version None)
Quarter: 2009Q4

REPORT INFORMATION
  Report Type: 
  Country: None (occurrence: None)
  Receive Date: 20091110
  Receipt Date: 20091030
  Transmission Date: 20100525
  Serious: Yes (Hospitalization)
  Sender: FDA-Public Use
  Company Number: CHNY2009FI03572

PATIENT
  Sex: Male

DRUGS (9)
  1. VOLTAREN [Suspect]
     Indication: ARTHRALGIA
     Dosage: UNK
     Route: 061
     Dates: start: 20090203, end: 20090201
  2. PRAVASTATIN (NGX) [Suspect]
     Indication: HYPERLIPIDAEMIA
     Dosage: 20 MG DAILY
     Dates: start: 20031101, end: 20090511
  3. TELZIR [Suspect]
     Indication: HIV INFECTION
     Dosage: 1.4 G DAILY
     Dates: start: 20041104, end: 20090511
  4. NORVIR [Suspect]
     Indication: HIV INFECTION
     Dosage: 200 MG DAILY
     Dates: start: 20041104, end: 20090511
  5. STOCRIN [Suspect]
     Indication: HIV INFECTION
     Dosage: 600 MG DAILY
     Dates: start: 20000425, end: 20090511
  6. MAREVAN ^BRITISH DRUG HOUSES^ [Suspect]
     Indication: ATRIAL FIBRILLATION
     Dosage: UNK
     Dates: start: 19970101, end: 20090201
  7. ISENTRESS [Concomitant]
     Indication: HIV INFECTION
     Dosage: UNK
     Dates: start: 20080719
  8. EMCONCOR  /BEL/ [Concomitant]
     Indication: ATRIAL FIBRILLATION
     Dosage: 5 MG DAILY
     Dates: start: 20040801
  9. DIGOXIN [Concomitant]
     Indication: ATRIAL FIBRILLATION
     Dosage: 0.25 MG DAILY
     Dates: start: 19970101

REACTIONS (10)
  - ACTIVATED PARTIAL THROMBOPLASTIN TIME PROLONGED [None]
  - FACTOR VIII DEFICIENCY [None]
  - HAEMATOMA [None]
  - HAEMORRHAGE [None]
  - MUSCLE HAEMORRHAGE [None]
  - MUSCLE NECROSIS [None]
  - MUSCLE RUPTURE [None]
  - MYOSITIS [None]
  - SKIN NECROSIS [None]
  - WOUND [None]
